FAERS Safety Report 8426754-5 (Version None)
Quarter: 2012Q2

REPORT INFORMATION
  Report Type: 
  Country: None (occurrence: None)
  Receive Date: 20120611
  Receipt Date: 20120604
  Transmission Date: 20120825
  Serious: Yes (Hospitalization)
  Sender: FDA-Public Use
  Company Number: PHHY2012FR000872

PATIENT
  Sex: Male

DRUGS (5)
  1. TRILEPTAL [Suspect]
     Indication: EPILEPSY
     Dosage: 600 MG ON MORNING AND 900 MG ON EVENING
     Dates: start: 20080101
  2. CLOBAZAM [Suspect]
     Indication: EPILEPSY
     Dosage: 10 MG, TID
  3. LAMICTAL [Suspect]
     Indication: EPILEPSY
     Dosage: 200 MGINMORNING AND 300 MG INEVENING
  4. LAMICTAL [Suspect]
     Dosage: 300 MG, BID
  5. CLOBAZAM [Suspect]
     Dosage: 10 MG, BID

REACTIONS (17)
  - ALANINE AMINOTRANSFERASE INCREASED [None]
  - PYREXIA [None]
  - APHASIA [None]
  - INFLAMMATION [None]
  - CONVULSION [None]
  - DYSARTHRIA [None]
  - HEMIPARESIS [None]
  - BACK PAIN [None]
  - BRONCHITIS [None]
  - BILIARY DILATATION [None]
  - BLOOD ALKALINE PHOSPHATASE INCREASED [None]
  - PAIN IN EXTREMITY [None]
  - BRONCHITIS VIRAL [None]
  - CONSCIOUSNESS FLUCTUATING [None]
  - CHOLESTASIS [None]
  - PNEUMONIA [None]
  - RENAL FAILURE [None]
